FAERS Safety Report 10501781 (Version 1)
Quarter: 2014Q4

REPORT INFORMATION
  Report Type: Spontaneous
  Country: US (occurrence: None)
  Receive Date: 20141006
  Receipt Date: 20141006
  Transmission Date: 20150528
  Serious: Yes (Other)
  Sender: FDA-Public Use
  Company Number: None

PATIENT
  Age: 45 Year
  Sex: Female
  Weight: 83.92 kg

DRUGS (1)
  1. LYRICA [Suspect]
     Active Substance: PREGABALIN
     Indication: NEUROPATHY PERIPHERAL
     Dosage: 1 PILL TWICE DAILY TAKEN BY MOUTH
     Route: 048
     Dates: start: 20140815, end: 20140930

REACTIONS (10)
  - Dry skin [None]
  - Skin irritation [None]
  - Pruritus [None]
  - Pain [None]
  - No therapeutic response [None]
  - Insomnia [None]
  - Rash [None]
  - Weight increased [None]
  - Erythema [None]
  - Skin disorder [None]

NARRATIVE: CASE EVENT DATE: 20140911
